FAERS Safety Report 7800709-3 (Version None)
Quarter: 2011Q4

REPORT INFORMATION
  Report Type: 
  Country: None (occurrence: None)
  Receive Date: 20111006
  Receipt Date: 20110928
  Transmission Date: 20120403
  Serious: No
  Sender: FDA-Public Use
  Company Number: US-B.I. PHARMACEUTICALS,INC./RIDGEFIELD-2011-BP-23033BP

PATIENT
  Sex: Female

DRUGS (8)
  1. ATENOLOL [Concomitant]
  2. LUTEIN [Concomitant]
     Indication: MACULAR DEGENERATION
  3. PRADAXA [Suspect]
     Indication: ATRIAL FIBRILLATION
     Dosage: 300 MG
     Route: 048
  4. OMEPRAZOLE [Concomitant]
     Indication: GASTROOESOPHAGEAL REFLUX DISEASE
  5. FUROSEMIDE [Concomitant]
  6. BENICAR [Concomitant]
  7. DESLORATADINE [Concomitant]
  8. CARBIDOPA + LEVODOPA [Concomitant]
     Indication: PARKINSON'S DISEASE

REACTIONS (2)
  - SENSORY DISTURBANCE [None]
  - PAROSMIA [None]
